FAERS Safety Report 8405135-4 (Version None)
Quarter: 2012Q2

REPORT INFORMATION
  Report Type: 
  Country: None (occurrence: None)
  Receive Date: 20120602
  Receipt Date: 20120522
  Transmission Date: 20120825
  Serious: Yes (Other)
  Sender: FDA-Public Use
  Company Number: CN-VALEANT-2012VX002535

PATIENT

DRUGS (4)
  1. LEUCOVORIN CALCIUM [Suspect]
     Indication: GASTRIC CANCER
     Route: 042
  2. FLUOROURACIL [Suspect]
     Indication: GASTRIC CANCER
     Route: 042
  3. CISPLATIN [Suspect]
     Indication: GASTRIC CANCER
     Route: 013
  4. ETOPOSIDE [Suspect]
     Indication: GASTRIC CANCER
     Route: 013

REACTIONS (1)
  - RENAL IMPAIRMENT [None]
